FAERS Safety Report 8893931 (Version 1)
Quarter: 2012Q4

REPORT INFORMATION
  Report Type: 
  Country: AU (occurrence: AU)
  Receive Date: 20121107
  Receipt Date: 20121107
  Transmission Date: 20130627
  Serious: Yes (Other)
  Sender: FDA-Public Use
  Company Number: AU-B.I. PHARMACEUTICALS,INC./RIDGEFIELD-2012-EU-05438GD

PATIENT
  Age: 53 Year
  Sex: Male

DRUGS (7)
  1. NEVIRAPINE [Suspect]
     Indication: HIV INFECTION
  2. DIDANOSINE [Suspect]
     Indication: HIV INFECTION
  3. TENOFOVIR [Suspect]
     Indication: HIV INFECTION
  4. LAMIVUDINE [Suspect]
     Indication: HIV INFECTION
  5. EMTRICITABINE [Suspect]
     Indication: HIV INFECTION
  6. LOPINAVIR/RITONAVIR [Suspect]
     Indication: HIV INFECTION
  7. SAQUINAVIR [Suspect]
     Indication: HIV INFECTION

REACTIONS (5)
  - Portal hypertension [Unknown]
  - Portal hypertensive gastropathy [Unknown]
  - Varices oesophageal [Unknown]
  - Ascites [Unknown]
  - Hepatic fibrosis [Unknown]
